FAERS Safety Report 16900041 (Version 2)
Quarter: 2020Q4

REPORT INFORMATION
  Report Type: Spontaneous
  Country: US (occurrence: US)
  Receive Date: 20191009
  Receipt Date: 20201126
  Transmission Date: 20210113
  Serious: Yes (Hospitalization, Other)
  Sender: FDA-Public Use
  Company Number: US-PFIZER INC-2019433165

PATIENT
  Age: 37 Year
  Sex: Male
  Weight: 76.2 kg

DRUGS (3)
  1. RAPAMUNE [Suspect]
     Active Substance: SIROLIMUS
     Indication: GOODPASTURE^S SYNDROME
     Dosage: 2 MG, 1X/DAY
     Route: 048
  2. RAPAMUNE [Suspect]
     Active Substance: SIROLIMUS
     Indication: TRANSPLANT REJECTION
  3. RAPAMUNE [Suspect]
     Active Substance: SIROLIMUS
     Indication: RENAL TRANSPLANT

REACTIONS (8)
  - Seizure [Unknown]
  - Osteonecrosis [Unknown]
  - Joint range of motion decreased [Unknown]
  - Localised infection [Unknown]
  - Muscle atrophy [Unknown]
  - Hypertension [Unknown]
  - Memory impairment [Unknown]
  - Atrial fibrillation [Unknown]

NARRATIVE: CASE EVENT DATE: 2017
